FAERS Safety Report 4772858-8 (Version None)
Quarter: 2005Q3

REPORT INFORMATION
  Report Type: 
  Country: None (occurrence: None)
  Receive Date: 20050916
  Receipt Date: 20050906
  Transmission Date: 20060218
  Serious: Yes (Hospitalization)
  Sender: FDA-Public Use
  Company Number: 1515-107

PATIENT
  Age: 41 Year
  Sex: Female

DRUGS (1)
  1. VENOFER (IRON SUCROSE INJ. (20 MG/5 ML AMPULE [Suspect]
     Indication: IRON DEFICIENCY ANAEMIA
     Dosage: 300MG IV
     Route: 042
     Dates: start: 20050725

REACTIONS (2)
  - APPLICATION SITE REACTION [None]
  - VENOUS THROMBOSIS [None]
